FAERS Safety Report 23973307 (Version 1)
Quarter: 2024Q2

REPORT INFORMATION
  Report Type: Spontaneous
  Country: US (occurrence: US)
  Receive Date: 20240613
  Receipt Date: 20240613
  Transmission Date: 20240716
  Serious: No
  Sender: FDA-Public Use
  Company Number: US-APELLIS-2024-APL-0000113

PATIENT

DRUGS (1)
  1. SYFOVRE [Suspect]
     Active Substance: PEGCETACOPLAN
     Indication: Dry age-related macular degeneration
     Dosage: UNKNOWN DOSE AND FREQUENCY
     Route: 031
     Dates: end: 20240426

REACTIONS (1)
  - Paracentesis eye [Unknown]

NARRATIVE: CASE EVENT DATE: 20240426
